FAERS Safety Report 11659325 (Version 3)
Quarter: 2015Q4

REPORT INFORMATION
  Report Type: Spontaneous
  Country: JP (occurrence: JP)
  Receive Date: 20151026
  Receipt Date: 20151118
  Transmission Date: 20160304
  Serious: Yes (Death, Life-Threatening)
  Sender: FDA-Public Use
  Company Number: JP-MYLANLABS-2015M1036301

PATIENT

DRUGS (7)
  1. CARBOPLATIN INJECTION 50 MG ^NK^ [Suspect]
     Active Substance: CARBOPLATIN
     Indication: LUNG SQUAMOUS CELL CARCINOMA STAGE I
     Dosage: 480 MG/BODY, EVERY 4WEEKS
     Route: 041
     Dates: start: 201404, end: 201408
  2. GRANISETRON                        /01178102/ [Concomitant]
     Active Substance: GRANISETRON
     Indication: PREMEDICATION
     Dosage: 3 MG, CYCLE
     Route: 042
     Dates: start: 20150909, end: 20150930
  3. CARBOPLATIN INJECTION 50 MG ^NK^ [Suspect]
     Active Substance: CARBOPLATIN
     Dosage: 300 MG/BODY, CYCLE
     Route: 041
     Dates: start: 20150909, end: 20150930
  4. DEXART [Concomitant]
     Active Substance: DEXAMETHASONE SODIUM PHOSPHATE
     Indication: PREMEDICATION
     Dosage: 6.6 MG, CYCLE
     Route: 042
     Dates: start: 20150909, end: 20150930
  5. GEMZAR [Suspect]
     Active Substance: GEMCITABINE HYDROCHLORIDE
     Indication: LUNG SQUAMOUS CELL CARCINOMA STAGE I
     Dosage: 1000 MG, CYCLE
     Route: 042
     Dates: start: 20140929, end: 20150819
  6. ABRAXANE [Suspect]
     Active Substance: PACLITAXEL
     Indication: LUNG SQUAMOUS CELL CARCINOMA STAGE I
     Dosage: 140 MG, CYCLE
     Route: 042
     Dates: start: 201404, end: 201408
  7. GASTER [Concomitant]
     Active Substance: FAMOTIDINE
     Indication: PREMEDICATION
     Dosage: 20 MG, CYCLE
     Route: 042
     Dates: start: 20150909, end: 20150930

REACTIONS (2)
  - Shock [Unknown]
  - Respiratory failure [Fatal]

NARRATIVE: CASE EVENT DATE: 20150930
